FAERS Safety Report 7811443-8 (Version None)
Quarter: 2011Q4

REPORT INFORMATION
  Report Type: 
  Country: None (occurrence: None)
  Receive Date: 20111013
  Receipt Date: 20111010
  Transmission Date: 20120403
  Serious: No
  Sender: FDA-Public Use
  Company Number: US-B.I. PHARMACEUTICALS,INC./RIDGEFIELD-2011-BP-23956BP

PATIENT
  Sex: Male

DRUGS (6)
  1. TRIAMTERENE [Concomitant]
     Indication: HYPERTENSION
  2. CARVEDILOL [Suspect]
     Indication: CARDIAC DISORDER
     Dates: start: 20110801
  3. PRADAXA [Suspect]
     Indication: ATRIAL FIBRILLATION
     Dosage: 300 MG
     Route: 048
     Dates: start: 20110801
  4. SYNTHROID [Concomitant]
     Indication: HYPOTHYROIDISM
  5. ANAGRELIDE HCL [Concomitant]
     Indication: PLATELET DISORDER
  6. LOSARTAN POTASSIUM [Concomitant]
     Indication: HYPERTENSION

REACTIONS (3)
  - BLOOD COUNT ABNORMAL [None]
  - ASTHENIA [None]
  - MELAENA [None]
